FAERS Safety Report 6564304-9 (Version None)
Quarter: 2010Q1

REPORT INFORMATION
  Report Type: 
  Country: None (occurrence: None)
  Receive Date: 20100201
  Receipt Date: 20090216
  Transmission Date: 20100710
  Serious: Yes (Disabling)
  Sender: FDA-Public Use
  Company Number: US-JNJFOC-20081005778

PATIENT
  Sex: Male
  Weight: 83.92 kg

DRUGS (11)
  1. LEVAQUIN [Suspect]
     Indication: BRONCHITIS
     Route: 048
  2. LEVAQUIN [Suspect]
     Route: 048
  3. LEVAQUIN [Suspect]
     Indication: UPPER RESPIRATORY TRACT INFECTION
     Route: 048
  4. LEVAQUIN [Suspect]
     Route: 048
  5. MEDROL [Suspect]
     Indication: UPPER RESPIRATORY TRACT INFECTION
  6. STEROIDS NOS [Suspect]
     Indication: DRUG USE FOR UNKNOWN INDICATION
  7. ALLOPURINOL [Concomitant]
  8. INDOMETHACIN [Concomitant]
  9. LISINOPRIL [Concomitant]
  10. ASPIRIN [Concomitant]
  11. VIAGRA [Concomitant]

REACTIONS (2)
  - PERONEAL NERVE PALSY [None]
  - TENDON RUPTURE [None]
